FAERS Safety Report 7054048-1 (Version None)
Quarter: 2010Q4

REPORT INFORMATION
  Report Type: 
  Country: None (occurrence: None)
  Receive Date: 20101020
  Receipt Date: 20101012
  Transmission Date: 20110411
  Serious: Yes (Other)
  Sender: FDA-Public Use
  Company Number: JP-EISAI INC.-E2090-01317-SPO-JP

PATIENT
  Sex: Female

DRUGS (3)
  1. EXCEGRAN [Suspect]
     Indication: PARKINSON'S DISEASE
     Route: 048
     Dates: start: 20100715, end: 20100101
  2. RIVOTRIL [Concomitant]
  3. CARBIDOPA AND LEVODOPA [Concomitant]

REACTIONS (1)
  - RENAL FAILURE [None]
